FAERS Safety Report 10083383 (Version 1)
Quarter: 2014Q2

REPORT INFORMATION
  Report Type: Spontaneous
  Country: US (occurrence: None)
  Receive Date: 20140415
  Receipt Date: 20140415
  Transmission Date: 20141212
  Serious: Yes (Life-Threatening, Disabling)
  Sender: FDA-Public Use
  Company Number: None

PATIENT
  Age: 56 Year
  Sex: Female
  Weight: 77.11 kg

DRUGS (1)
  1. DULOXETINE HCL 60 MG SUN PHARMA GLOB [Suspect]
     Indication: DEPRESSION
     Route: 048

REACTIONS (8)
  - Product substitution issue [None]
  - Disturbance in attention [None]
  - Memory impairment [None]
  - Agitation [None]
  - Crying [None]
  - Anger [None]
  - Suicidal ideation [None]
  - Circadian rhythm sleep disorder [None]
